FAERS Safety Report 21050193 (Version 1)
Quarter: 2022Q3

REPORT INFORMATION
  Report Type: Spontaneous
  Country: US (occurrence: US)
  Receive Date: 20220706
  Receipt Date: 20220706
  Transmission Date: 20221026
  Serious: Yes (Other)
  Sender: FDA-Public Use
  Company Number: US-drreddys-LIT/USA/22/0151783

PATIENT
  Age: 21 Year
  Sex: Female

DRUGS (6)
  1. LEVETIRACETAM [Suspect]
     Active Substance: LEVETIRACETAM
     Indication: MELAS syndrome
  2. PREGABALIN [Suspect]
     Active Substance: PREGABALIN
     Indication: MELAS syndrome
  3. LAMOTRIGINE [Suspect]
     Active Substance: LAMOTRIGINE
     Indication: MELAS syndrome
  4. GABAPENTIN [Suspect]
     Active Substance: GABAPENTIN
     Indication: MELAS syndrome
  5. ETHOSUXIMIDE [Suspect]
     Active Substance: ETHOSUXIMIDE
     Indication: MELAS syndrome
  6. PHENYTOIN [Suspect]
     Active Substance: PHENYTOIN
     Indication: MELAS syndrome

REACTIONS (1)
  - Headache [Unknown]
